FAERS Safety Report 9970138 (Version 1)
Quarter: 2014Q1

REPORT INFORMATION
  Report Type: Report from Study
  Country: US (occurrence: US)
  Receive Date: 20140306
  Receipt Date: 20140306
  Transmission Date: 20141002
  Serious: Yes (Hospitalization)
  Sender: FDA-Public Use
  Company Number: PHEH2014US003914

PATIENT
  Age: 25 Year
  Sex: Male

DRUGS (19)
  1. TOBI PODHALER [Suspect]
     Indication: CYSTIC FIBROSIS
     Dosage: 2 DF, BID, 28DAY ON/OFF
     Route: 055
     Dates: start: 201401
  2. CREON [Concomitant]
     Dosage: 24000 U, UNK
  3. CYPROHEPTADINE [Concomitant]
     Dosage: 4 MG
  4. MINOCYCLINE [Concomitant]
     Dosage: 100 MG
  5. AZITHROMYCIN [Concomitant]
     Dosage: 250 MG
  6. LANSOPRAZOLE [Concomitant]
     Dosage: 30 MG
  7. URSODIOL [Concomitant]
     Dosage: 300 MG
  8. FLONASE [Concomitant]
     Dosage: 0.05 %, UNK
  9. VENTOLIN                           /00942701/ [Concomitant]
     Dosage: 90 UG, UNK
     Route: 055
  10. MIRALAX [Concomitant]
  11. BACTRIM [Concomitant]
  12. MEPHYTON [Concomitant]
     Dosage: 5 MG
  13. SUPRAX ^KLINGE^ [Concomitant]
     Dosage: 400 MG
  14. COLACE [Concomitant]
     Dosage: 100 MG
  15. PULMOZYME [Concomitant]
     Dosage: 1 MG/ML
  16. VITAMIN D2 [Concomitant]
     Dosage: 400 MG, UNK
  17. AQUADEKS [Concomitant]
  18. CALCIUM CARBONATE [Concomitant]
  19. VITAMIN E [Concomitant]
     Dosage: 400 U, UNK

REACTIONS (2)
  - Intestinal obstruction [Recovered/Resolved]
  - Cough [Unknown]
